FAERS Safety Report 19132852 (Version 1)
Quarter: 2021Q2

REPORT INFORMATION
  Report Type: Report from Study
  Country: PK (occurrence: PK)
  Receive Date: 20210414
  Receipt Date: 20210414
  Transmission Date: 20210717
  Serious: Yes (Other)
  Sender: FDA-Public Use
  Company Number: NVSC2021PK078920

PATIENT
  Age: 32 Year
  Sex: Female

DRUGS (2)
  1. COSENTYX [Suspect]
     Active Substance: SECUKINUMAB
     Dosage: 300 MG (FREQ: 300MG AFTER EVERY 15 DAYS)
     Route: 058
     Dates: start: 20210324
  2. COSENTYX [Suspect]
     Active Substance: SECUKINUMAB
     Indication: PSORIASIS
     Dosage: UNK (COMPLETED ALL HER LOADING DOSES WITH MAINTENANCE DOSE FOR 6 MONTHS)
     Route: 065
     Dates: start: 20191031, end: 20200421

REACTIONS (2)
  - Psoriasis [Unknown]
  - Inappropriate schedule of product administration [Not Recovered/Not Resolved]

NARRATIVE: CASE EVENT DATE: 20210324
